FAERS Safety Report 9093367 (Version 1)
Quarter: 2013Q1

REPORT INFORMATION
  Report Type: Report from Study
  Country: US (occurrence: US)
  Receive Date: 20130131
  Receipt Date: 20130131
  Transmission Date: 20140127
  Serious: No
  Sender: FDA-Public Use
  Company Number: US-ABBOTT-12P-163-1001861-00

PATIENT
  Age: 58 Year
  Sex: Female

DRUGS (2)
  1. HUMIRA [Suspect]
     Indication: COLITIS ULCERATIVE
     Dosage: 2ND LOADING DOSE
     Dates: start: 20121012, end: 20121012
  2. HUMIRA [Suspect]

REACTIONS (2)
  - Device malfunction [Unknown]
  - Incorrect dose administered [Unknown]
